FAERS Safety Report 5030564-9 (Version None)
Quarter: 2006Q2

REPORT INFORMATION
  Report Type: 
  Country: None (occurrence: None)
  Receive Date: 20060615
  Receipt Date: 20060601
  Transmission Date: 20061013
  Serious: Yes (Life-Threatening, Hospitalization)
  Sender: FDA-Public Use
  Company Number: 2006RR-02541

PATIENT
  Age: 47 Year
  Sex: Female

DRUGS (4)
  1. AMITRIPTYLINE (AMITRIPTYLINE) UNKNIOWN, 50MG [Suspect]
  2. FLUOXETINE [Suspect]
  3. DOPAMINE [Concomitant]
  4. LORAZEPAM [Suspect]
     Dosage: TABLET, 0.5MG

REACTIONS (8)
  - ELECTROCARDIOGRAM QRS COMPLEX SHORTENED [None]
  - HEPATIC FAILURE [None]
  - HYPOTENSION [None]
  - ISCHAEMIC HEPATITIS [None]
  - LOSS OF CONSCIOUSNESS [None]
  - MULTIPLE DRUG OVERDOSE [None]
  - RHABDOMYOLYSIS [None]
  - SINUS BRADYCARDIA [None]
